FAERS Safety Report 7740739-3 (Version None)
Quarter: 2011Q3

REPORT INFORMATION
  Report Type: 
  Country: None (occurrence: None)
  Receive Date: 20110909
  Receipt Date: 20110906
  Transmission Date: 20111222
  Serious: Yes (Other)
  Sender: FDA-Public Use
  Company Number: FR-PFIZER INC-2011157911

PATIENT
  Age: 59 Year
  Sex: Male

DRUGS (2)
  1. LYRICA [Suspect]
     Dosage: 300 MG, 2X/DAY
     Dates: start: 20110301
  2. LYRICA [Suspect]
     Dosage: UNK

REACTIONS (2)
  - HYPERGLYCAEMIA [None]
  - OEDEMA PERIPHERAL [None]
